FAERS Safety Report 18808941 (Version 6)
Quarter: 2021Q1

REPORT INFORMATION
  Report Type: Report from Study
  Country: TH (occurrence: TH)
  Receive Date: 20210129
  Receipt Date: 20210318
  Transmission Date: 20210419
  Serious: Yes (Life-Threatening, Hospitalization)
  Sender: FDA-Public Use
  Company Number: TH-ROCHE-2744472

PATIENT
  Age: 64 Year
  Sex: Male
  Weight: 60.5 kg

DRUGS (21)
  1. LACTULOSE. [Concomitant]
     Active Substance: LACTULOSE
     Dates: start: 20210126, end: 20210127
  2. LACTULOSE. [Concomitant]
     Active Substance: LACTULOSE
     Dates: start: 20210126, end: 20210202
  3. AIR?X [Concomitant]
     Indication: ABDOMINAL DISTENSION
     Dates: start: 20210118, end: 20210125
  4. VITAMIN B COMPLEX [Concomitant]
     Active Substance: CYANOCOBALAMIN\DEXPANTHENOL\NIACINAMIDE\PYRIDOXINE HYDROCHLORIDE\RIBOFLAVIN 5^-PHOSPHATE SODIUM\THIAMINE HYDROCHLORIDE\VITAMIN B COMPLEX
     Indication: PROPHYLAXIS
     Dates: start: 20210126
  5. OMEPRAZOLE. [Concomitant]
     Active Substance: OMEPRAZOLE
     Indication: PROPHYLAXIS
     Dates: start: 20210126, end: 20210207
  6. LASIX [Concomitant]
     Active Substance: FUROSEMIDE
     Dates: start: 20210130
  7. LACTULOSE. [Concomitant]
     Active Substance: LACTULOSE
     Indication: CONSTIPATION
     Dates: start: 20210126, end: 20210126
  8. LASIX [Concomitant]
     Active Substance: FUROSEMIDE
     Indication: PROPHYLAXIS
     Dates: start: 20210130
  9. LASIX [Concomitant]
     Active Substance: FUROSEMIDE
     Indication: ABDOMINAL DISTENSION
     Dates: start: 20210118, end: 20210125
  10. METRONIDAZOLE. [Concomitant]
     Active Substance: METRONIDAZOLE
     Indication: ANAL ABSCESS
     Dates: start: 20210129, end: 20210205
  11. ALDACTONE [Concomitant]
     Active Substance: SPIRONOLACTONE
     Dates: start: 20210131, end: 20210203
  12. ALDACTONE [Concomitant]
     Active Substance: SPIRONOLACTONE
     Dates: start: 20210204
  13. ALDACTONE [Concomitant]
     Active Substance: SPIRONOLACTONE
     Indication: PROPHYLAXIS
     Dates: start: 20210128, end: 20210131
  14. ATEZOLIZUMAB. [Suspect]
     Active Substance: ATEZOLIZUMAB
     Indication: HEPATOCELLULAR CARCINOMA
     Dosage: ON 14/DEC/2020, HE RECEIVED MOST RECENT DOSE OF ATEZOLIZUMAB (1200 MG) PRIOR TO ADVERSE EVENT ONSET.
     Route: 042
     Dates: start: 20201214
  15. VALIUM [Concomitant]
     Active Substance: DIAZEPAM
     Dates: start: 20210127, end: 20210127
  16. FOLIC ACID. [Concomitant]
     Active Substance: FOLIC ACID
     Indication: PROPHYLAXIS
     Dates: start: 20210126
  17. BEVACIZUMAB. [Suspect]
     Active Substance: BEVACIZUMAB
     Indication: HEPATOCELLULAR CARCINOMA
     Dosage: ON 14/DEC/2020, HE RECEIVED MOST RECENT DOSE OF BEVACIZUMAB (910 MG) PRIOR TO ADVERSE EVENT ONSET
     Route: 042
     Dates: start: 20201214
  18. TRIAMCINOLONE [Concomitant]
     Active Substance: TRIAMCINOLONE
     Indication: PRURITUS
     Route: 062
     Dates: start: 20210105
  19. LACTULOSE. [Concomitant]
     Active Substance: LACTULOSE
     Indication: PROPHYLAXIS
     Dates: start: 20210129, end: 20210129
  20. THIAMINE. [Concomitant]
     Active Substance: THIAMINE
     Dates: start: 20210126, end: 20210128
  21. OMEPRAZOLE. [Concomitant]
     Active Substance: OMEPRAZOLE
     Dates: start: 20210208

REACTIONS (2)
  - Meningitis bacterial [Recovering/Resolving]
  - Hepatitis [Not Recovered/Not Resolved]

NARRATIVE: CASE EVENT DATE: 20210104
